FAERS Safety Report 15681219 (Version 3)
Quarter: 2019Q1

REPORT INFORMATION
  Report Type: Spontaneous
  Country: FR (occurrence: FR)
  Receive Date: 20181203
  Receipt Date: 20190111
  Transmission Date: 20190417
  Serious: Yes (Other)
  Sender: FDA-Public Use
  Company Number: FR-ASTRAZENECA-2018SF57905

PATIENT
  Age: 1 Month
  Sex: Female
  Weight: 1.3 kg

DRUGS (2)
  1. SYNAGIS [Suspect]
     Active Substance: PALIVIZUMAB
     Indication: PROPHYLAXIS
     Dosage: 20 MG
     Route: 030
     Dates: start: 20181018, end: 20181018
  2. SYNAGIS [Suspect]
     Active Substance: PALIVIZUMAB
     Indication: PROPHYLAXIS
     Route: 030
     Dates: start: 20181108

REACTIONS (6)
  - Vomiting [Recovered/Resolved]
  - Gastrointestinal wall thickening [Unknown]
  - Gastrointestinal disorder [Recovered/Resolved]
  - Respiratory gas exchange disorder [Unknown]
  - Abdominal distension [Recovered/Resolved]
  - Regurgitation [Recovered/Resolved]

NARRATIVE: CASE EVENT DATE: 201810
